FAERS Safety Report 20947965 (Version 1)
Quarter: 2022Q2

REPORT INFORMATION
  Report Type: Report from Study
  Country: US (occurrence: US)
  Receive Date: 20220611
  Receipt Date: 20220611
  Transmission Date: 20220721
  Serious: Yes (Other)
  Sender: FDA-Public Use
  Company Number: US-TAKEDA-2020TUS052477

PATIENT
  Sex: Female

DRUGS (2)
  1. HUMAN IMMUNOGLOBULIN G\HYALURONIDASE RECOMBINANT HUMAN [Suspect]
     Active Substance: HUMAN IMMUNOGLOBULIN G\HYALURONIDASE RECOMBINANT HUMAN
     Indication: Primary immunodeficiency syndrome
     Dosage: UNK
     Route: 065
  2. HUMAN IMMUNOGLOBULIN G [Suspect]
     Active Substance: HUMAN IMMUNOGLOBULIN G
     Indication: Primary immunodeficiency syndrome
     Dosage: UNK
     Route: 065

REACTIONS (9)
  - Osteonecrosis [Unknown]
  - Complex regional pain syndrome [Unknown]
  - Nerve injury [Unknown]
  - Infusion site swelling [Unknown]
  - Fatigue [Unknown]
  - Meniscus injury [Unknown]
  - Bronchitis [Unknown]
  - Arthropathy [Recovering/Resolving]
  - Nasopharyngitis [Unknown]
